FAERS Safety Report 5951967-1 (Version None)
Quarter: 2008Q4

REPORT INFORMATION
  Report Type: 
  Country: None (occurrence: None)
  Receive Date: 20081113
  Receipt Date: 20071004
  Transmission Date: 20090506
  Serious: No
  Sender: FDA-Public Use
  Company Number: A0686469A

PATIENT
  Age: 70 Year
  Sex: Male

DRUGS (15)
  1. COREG [Suspect]
     Dosage: 12.5MG TWICE PER DAY
     Route: 048
  2. VICODIN [Concomitant]
  3. TYLENOL W/ CODEINE [Concomitant]
  4. NEXIUM [Concomitant]
  5. SEREVENT [Concomitant]
  6. ATROVENT [Concomitant]
  7. ALBUTEROL [Concomitant]
  8. ACCUPRIL [Concomitant]
  9. ZYRTEC [Concomitant]
  10. FLONASE [Concomitant]
  11. ZOCOR [Concomitant]
  12. ASPIRIN [Concomitant]
  13. NORTRIPTYLINE HCL [Concomitant]
  14. CLONAZEPAM [Concomitant]
  15. COUMADIN [Concomitant]

REACTIONS (2)
  - DIZZINESS [None]
  - HYPOTENSION [None]
